FAERS Safety Report 5698957-4 (Version None)
Quarter: 2008Q2

REPORT INFORMATION
  Report Type: 
  Country: None (occurrence: None)
  Receive Date: 20080408
  Receipt Date: 20060913
  Transmission Date: 20081010
  Serious: No
  Sender: FDA-Public Use
  Company Number: US-BAYER-US-2006-027350

PATIENT
  Age: 37 Year
  Sex: Female
  Weight: 78 kg

DRUGS (2)
  1. ULTRAVIST 300 [Suspect]
     Indication: COMPUTERISED TOMOGRAM
     Route: 042
  2. BENADRYL ^PFIZER WARNER-LAMBERT^ [Concomitant]
     Indication: PREMEDICATION
     Dosage: UNIT DOSE: 50 MG

REACTIONS (3)
  - COUGH [None]
  - THROAT IRRITATION [None]
  - URTICARIA [None]
